FAERS Safety Report 11825882 (Version 2)
Quarter: 2016Q1

REPORT INFORMATION
  Report Type: Spontaneous
  Country: NL (occurrence: NL)
  Receive Date: 20151211
  Receipt Date: 20160202
  Transmission Date: 20160525
  Serious: Yes (Other)
  Sender: FDA-Public Use
  Company Number: NL-TEVA-615372ACC

PATIENT
  Age: 68 Year
  Sex: Female
  Weight: 90 kg

DRUGS (2)
  1. IRBESARTAN TABLET  75MG [Suspect]
     Active Substance: IRBESARTAN
     Indication: HYPERTENSION
     Dosage: 75 MILLIGRAM DAILY; ONCE DAILY ONE PIECE
     Route: 048
     Dates: start: 201310
  2. IBUPROFEN TABLET 400MG [Suspect]
     Active Substance: IBUPROFEN
     Indication: HEADACHE
     Dosage: ADDITIONAL INFO: INCIDENTALLY WITH HEADACHE AND AFTER CYCLING TRAUMA MORE OFTEN.
     Route: 048
     Dates: start: 2010

REACTIONS (3)
  - Fatigue [Recovering/Resolving]
  - Arrhythmia [Recovering/Resolving]
  - Dizziness [Recovering/Resolving]

NARRATIVE: CASE EVENT DATE: 201401
